FAERS Safety Report 15773287 (Version 2)
Quarter: 2019Q1

REPORT INFORMATION
  Report Type: Spontaneous
  Country: FR (occurrence: FR)
  Receive Date: 20181228
  Receipt Date: 20190201
  Transmission Date: 20190417
  Serious: Yes (Death, Life-Threatening)
  Sender: FDA-Public Use
  Company Number: FR-TEVA-2018-FR-992604

PATIENT
  Age: 79 Year
  Sex: Female
  Weight: 95 kg

DRUGS (5)
  1. VERAPAMIL (CHLORHYDRATE DE) [Suspect]
     Active Substance: VERAPAMIL HYDROCHLORIDE
     Indication: HYPERTENSION
     Dosage: 240 MILLIGRAM DAILY;
     Route: 048
     Dates: end: 20181105
  2. CELIPROLOL [Interacting]
     Active Substance: CELIPROLOL
     Indication: HYPERTENSION
     Dosage: 400 MILLIGRAM DAILY;
     Route: 048
     Dates: end: 20181105
  3. VESANOID [Interacting]
     Active Substance: TRETINOIN
     Indication: ACUTE MYELOID LEUKAEMIA
     Dosage: 4 DOSAGE FORMS DAILY;
     Route: 048
     Dates: start: 20181030, end: 20181109
  4. URAPIDIL [Concomitant]
     Active Substance: URAPIDIL
     Dosage: 120 MILLIGRAM DAILY;
     Route: 048
     Dates: end: 2018
  5. POSACONAZOLE [Concomitant]
     Active Substance: POSACONAZOLE
     Indication: FUNGAL INFECTION
     Route: 048
     Dates: start: 201810, end: 201811

REACTIONS (3)
  - Cardio-respiratory arrest [Recovered/Resolved]
  - Drug interaction [Unknown]
  - Bradycardia [Recovered/Resolved]

NARRATIVE: CASE EVENT DATE: 20181105
